FAERS Safety Report 5616252-6 (Version None)
Quarter: 2008Q1

REPORT INFORMATION
  Report Type: 
  Country: None (occurrence: None)
  Receive Date: 20080204
  Receipt Date: 20080124
  Transmission Date: 20080703
  Serious: Yes (Other)
  Sender: FDA-Public Use
  Company Number: SPV1-2008-00142

PATIENT
  Sex: Female

DRUGS (2)
  1. CARBATROL [Suspect]
     Dosage: 300 MG, 2X/DAY:BID, ORAL
     Route: 048
     Dates: start: 20070101
  2. TOPAMAX [Concomitant]

REACTIONS (2)
  - CONVULSION [None]
  - DRUG INEFFECTIVE [None]
